FAERS Safety Report 6387913-9 (Version None)
Quarter: 2009Q4

REPORT INFORMATION
  Report Type: 
  Country: None (occurrence: None)
  Receive Date: 20091005
  Receipt Date: 20090928
  Transmission Date: 20100525
  Serious: Yes (Death)
  Sender: FDA-Public Use
  Company Number: CA-AVENTIS-200921085GDDC

PATIENT

DRUGS (4)
  1. TAXOTERE [Suspect]
     Dosage: DOSE: UNKNOWN
     Dates: start: 20090101, end: 20090101
  2. FLUOROURACIL [Concomitant]
     Dosage: DOSE: UNK
     Dates: end: 20090101
  3. EPIRUBICIN [Concomitant]
     Dosage: DOSE: UNK
     Dates: end: 20090101
  4. CYCLOPHOSPHAMIDE [Concomitant]
     Dosage: DOSE: UNK
     Dates: end: 20090101

REACTIONS (1)
  - DEATH [None]
